FAERS Safety Report 18552967 (Version 1)
Quarter: 2020Q4

REPORT INFORMATION
  Report Type: Spontaneous
  Country: GB (occurrence: GB)
  Receive Date: 20201127
  Receipt Date: 20201127
  Transmission Date: 20210114
  Serious: Yes (Death, Other)
  Sender: FDA-Public Use
  Company Number: GB-AUROBINDO-AUR-APL-2011-05150

PATIENT
  Age: 20 Year
  Sex: Male

DRUGS (5)
  1. FERROUS SULFATE. [Interacting]
     Active Substance: FERROUS SULFATE
     Indication: PRODUCT USED FOR UNKNOWN INDICATION
     Dosage: UNK
     Route: 048
  2. AMOXICILLIN. [Suspect]
     Active Substance: AMOXICILLIN
     Indication: PRODUCT USED FOR UNKNOWN INDICATION
     Dosage: UNK
     Route: 048
  3. ERYTHROMYCIN. [Interacting]
     Active Substance: ERYTHROMYCIN
     Indication: PRODUCT USED FOR UNKNOWN INDICATION
     Dosage: UNK
     Route: 048
  4. LOPERAMIDE [Interacting]
     Active Substance: LOPERAMIDE
     Indication: PRODUCT USED FOR UNKNOWN INDICATION
     Dosage: UNK
     Route: 048
  5. PARACETAMOL [Interacting]
     Active Substance: ACETAMINOPHEN
     Indication: PRODUCT USED FOR UNKNOWN INDICATION
     Dosage: UNK
     Route: 048

REACTIONS (13)
  - Acute hepatic failure [Fatal]
  - Brain oedema [Fatal]
  - Cholestasis [Fatal]
  - Overdose [Fatal]
  - Sepsis [Fatal]
  - Liver injury [Unknown]
  - Drug interaction [Unknown]
  - Pupillary disorder [Unknown]
  - Hepatic necrosis [Fatal]
  - Completed suicide [Fatal]
  - Toxicity to various agents [Fatal]
  - Ammonia increased [Fatal]
  - Brain herniation [Unknown]
